FAERS Safety Report 17477361 (Version 2)
Quarter: 2021Q1

REPORT INFORMATION
  Report Type: Report from Study
  Country: FR (occurrence: FR)
  Receive Date: 20200229
  Receipt Date: 20210113
  Transmission Date: 20210419
  Serious: Yes (Hospitalization)
  Sender: FDA-Public Use
  Company Number: FR-AMGEN-FRACT2020023529

PATIENT
  Age: 63 Year
  Sex: Male
  Weight: 62 kg

DRUGS (15)
  1. ELVORINE [Suspect]
     Active Substance: LEUCOVORIN CALCIUM
     Dosage: UNK
     Route: 042
  2. IRINOTECAN [Suspect]
     Active Substance: IRINOTECAN
     Dosage: UNK
     Route: 042
  3. 5 FU [Suspect]
     Active Substance: FLUOROURACIL
     Dosage: UNK
     Route: 040
  4. OXALIPLATIN. [Suspect]
     Active Substance: OXALIPLATIN
     Indication: COLORECTAL CANCER
     Dosage: 136 MILLIGRAM
     Route: 042
     Dates: start: 20191126
  5. IRINOTECAN [Suspect]
     Active Substance: IRINOTECAN
     Indication: COLORECTAL CANCER
     Dosage: 192 MILLIGRAM
     Route: 042
     Dates: start: 20191126
  6. OXALIPLATIN. [Suspect]
     Active Substance: OXALIPLATIN
     Dosage: UNK
     Route: 042
  7. DOLIPRANE [Concomitant]
     Active Substance: ACETAMINOPHEN
     Indication: PAIN
     Dosage: 3 GRAM, QD
     Route: 048
     Dates: start: 20191107
  8. PANITUMUMAB [Suspect]
     Active Substance: PANITUMUMAB
     Dosage: UNK
     Route: 042
  9. ELVORINE [Suspect]
     Active Substance: LEUCOVORIN CALCIUM
     Indication: COLORECTAL CANCER
     Dosage: 319 MILLIGRAM
     Route: 042
     Dates: start: 20191126
  10. 5 FU [Suspect]
     Active Substance: FLUOROURACIL
     Dosage: 3070 MILLIGRAM
     Route: 042
     Dates: start: 20191126
  11. PANITUMUMAB [Suspect]
     Active Substance: PANITUMUMAB
     Indication: COLORECTAL CANCER METASTATIC
     Dosage: 330 MILLIGRAM
     Route: 042
     Dates: start: 20191126
  12. 5 FU [Suspect]
     Active Substance: FLUOROURACIL
     Indication: COLORECTAL CANCER
     Dosage: 510 MILLIGRAM
     Route: 040
     Dates: start: 20191126
  13. TRAMADOL. [Concomitant]
     Active Substance: TRAMADOL
     Indication: PAIN
     Dosage: 50 MILLIGRAM/KILOGRAM, QD
     Route: 048
     Dates: start: 20191107
  14. 5 FU [Suspect]
     Active Substance: FLUOROURACIL
     Dosage: UNK
     Route: 042
  15. MOVICOL [MACROGOL 4000;POTASSIUM CHLORIDE;SODIUM BICARBONATE;SODIUM CH [Concomitant]
     Indication: ABDOMINAL PAIN
     Dosage: 1 UNK, QD
     Route: 048
     Dates: start: 20191107

REACTIONS (1)
  - Diarrhoea [Recovered/Resolved]

NARRATIVE: CASE EVENT DATE: 20200129
